FAERS Safety Report 8032942-2 (Version None)
Quarter: 2011Q4

REPORT INFORMATION
  Report Type: 
  Country: None (occurrence: None)
  Receive Date: 20111202
  Receipt Date: 20100816
  Transmission Date: 20120403
  Serious: Yes (Hospitalization)
  Sender: FDA-Public Use
  Company Number: 2010SP044532

PATIENT
  Age: 34 Year
  Sex: Female
  Weight: 65.7716 kg

DRUGS (1)
  1. NUVARING [Suspect]
     Indication: MENSTRUAL CYCLE MANAGEMENT
     Dates: start: 20060901, end: 20061028

REACTIONS (4)
  - UTERINE LEIOMYOMA [None]
  - PULMONARY EMBOLISM [None]
  - SYSTEMIC LUPUS ERYTHEMATOSUS [None]
  - GOITRE [None]
